FAERS Safety Report 22140170 (Version 1)
Quarter: 2023Q1

REPORT INFORMATION
  Report Type: Spontaneous
  Country: US (occurrence: US)
  Receive Date: 20230327
  Receipt Date: 20230327
  Transmission Date: 20230418
  Serious: Yes (Other)
  Sender: FDA-Public Use
  Company Number: US-SUN PHARMACEUTICAL INDUSTRIES LTD-2023R1-382508

PATIENT
  Age: 65 Year
  Sex: Female

DRUGS (9)
  1. ACETAMINOPHEN [Suspect]
     Active Substance: ACETAMINOPHEN
     Indication: Systemic lupus erythematosus
     Dosage: 650 MILLIGRAM, DAILY PRN
     Route: 065
  2. ESOMEPRAZOLE [Suspect]
     Active Substance: ESOMEPRAZOLE
     Indication: Systemic lupus erythematosus
     Dosage: 40 MILLIGRAM, DAILY
     Route: 065
  3. FOLIC ACID [Suspect]
     Active Substance: FOLIC ACID
     Indication: Systemic lupus erythematosus
     Dosage: 1 MILLIGRAM, DAILY
     Route: 065
  4. HYDROCHLOROTHIAZIDE [Suspect]
     Active Substance: HYDROCHLOROTHIAZIDE
     Indication: Systemic lupus erythematosus
     Dosage: 25 MILLIGRAM, DAILY
     Route: 065
  5. PREDNISONE [Suspect]
     Active Substance: PREDNISONE
     Indication: Systemic lupus erythematosus
     Dosage: 5 MILLIGRAM, DAILY
     Route: 065
  6. TRAZODONE [Suspect]
     Active Substance: TRAZODONE HYDROCHLORIDE
     Indication: Systemic lupus erythematosus
     Dosage: 50 MILLIGRAM, DAILY
     Route: 065
  7. PROPRANOLOL [Suspect]
     Active Substance: PROPRANOLOL HYDROCHLORIDE
     Indication: Systemic lupus erythematosus
     Dosage: 10 MILLIGRAM, BID
     Route: 065
  8. CEVIMELINE [Suspect]
     Active Substance: CEVIMELINE
     Indication: Systemic lupus erythematosus
     Dosage: 30 MILLIGRAM, DAILY PRN
     Route: 065
  9. CONJUGATED ESTROGENS [Suspect]
     Active Substance: ESTROGENS, CONJUGATED
     Indication: Systemic lupus erythematosus
     Dosage: 0.9 MILLIGRAM, DAILY
     Route: 065

REACTIONS (2)
  - Systemic lupus erythematosus [Unknown]
  - Treatment failure [Unknown]
